FAERS Safety Report 13342659 (Version 1)
Quarter: 2017Q1

REPORT INFORMATION
  Report Type: Spontaneous
  Country: US (occurrence: US)
  Receive Date: 20170316
  Receipt Date: 20170316
  Transmission Date: 20170428
  Serious: No
  Sender: FDA-Public Use
  Company Number: US-BAYER-2017-050246

PATIENT
  Age: 75 Year
  Sex: Female
  Weight: 63.99 kg

DRUGS (2)
  1. PINDOLOL. [Concomitant]
     Active Substance: PINDOLOL
     Dosage: UNK
  2. CLARITIN [Suspect]
     Active Substance: LORATADINE
     Indication: MAST CELL ACTIVATION SYNDROME
     Dosage: 1 TABLET TWICE DAILY
     Route: 048
     Dates: start: 201703

REACTIONS (4)
  - Off label use [Unknown]
  - Drug prescribing error [Unknown]
  - Drug prescribing error [Unknown]
  - Product use issue [Unknown]

NARRATIVE: CASE EVENT DATE: 201703
